FAERS Safety Report 15801187 (Version 3)
Quarter: 2019Q1

REPORT INFORMATION
  Report Type: Report from Study
  Country: US (occurrence: US)
  Receive Date: 20190109
  Receipt Date: 20190213
  Transmission Date: 20190417
  Serious: Yes (Hospitalization, Other)
  Sender: FDA-Public Use
  Company Number: US-GILEAD-2019-0383548

PATIENT
  Age: 57 Year
  Sex: Female

DRUGS (3)
  1. AMBRISENTAN [Suspect]
     Active Substance: AMBRISENTAN
     Indication: PULMONARY ARTERIAL HYPERTENSION
     Dosage: 10 MG, QD
     Route: 065
     Dates: start: 2016
  2. OXYGEN. [Concomitant]
     Active Substance: OXYGEN
  3. AMBRISENTAN [Suspect]
     Active Substance: AMBRISENTAN
     Dosage: 5 MG, QD
     Route: 065
     Dates: start: 20101003

REACTIONS (5)
  - Dyspnoea [Not Recovered/Not Resolved]
  - Intra-abdominal fluid collection [Unknown]
  - Fluid retention [Unknown]
  - Product use issue [Not Recovered/Not Resolved]
  - Cardiac failure [Unknown]

NARRATIVE: CASE EVENT DATE: 20181227
